FAERS Safety Report 7169816-5 (Version None)
Quarter: 2010Q4

REPORT INFORMATION
  Report Type: 
  Country: None (occurrence: None)
  Receive Date: 20101214
  Receipt Date: 20101214
  Transmission Date: 20110411
  Serious: Yes (Other)
  Sender: FDA-Public Use
  Company Number: None

PATIENT
  Sex: Female
  Weight: 57.1532 kg

DRUGS (1)
  1. LOESTRIN 21 1.5/30 [Suspect]
     Dosage: LOESTRIN 21 GENERIC 1 PO DAILY PO
     Route: 048
     Dates: start: 20030901, end: 20030923

REACTIONS (3)
  - DRUG INEFFECTIVE [None]
  - PRODUCT SUBSTITUTION ISSUE [None]
  - RASH [None]
